FAERS Safety Report 19598744 (Version 1)
Quarter: 2021Q3

REPORT INFORMATION
  Report Type: Spontaneous
  Country: US (occurrence: US)
  Receive Date: 20210722
  Receipt Date: 20210722
  Transmission Date: 20211014
  Serious: No
  Sender: FDA-Public Use
  Company Number: None

PATIENT
  Age: 71 Year
  Sex: Male
  Weight: 85.28 kg

DRUGS (2)
  1. ERTAPENEM (ERTAPENEM 1GM/VIL INJ) [Suspect]
     Active Substance: ERTAPENEM
     Indication: OTITIS MEDIA
     Dates: start: 20210324, end: 20210403
  2. ERTAPENEM (ERTAPENEM 1GM/VIL INJ) [Suspect]
     Active Substance: ERTAPENEM
     Indication: INTERVERTEBRAL DISCITIS
     Dates: start: 20210324, end: 20210403

REACTIONS (2)
  - Hallucination [None]
  - Delirium [None]

NARRATIVE: CASE EVENT DATE: 20210403
